FAERS Safety Report 21065388 (Version 1)
Quarter: 2022Q3

REPORT INFORMATION
  Report Type: Spontaneous
  Country: FR (occurrence: FR)
  Receive Date: 20220711
  Receipt Date: 20220711
  Transmission Date: 20221026
  Serious: Yes (Hospitalization)
  Sender: FDA-Public Use
  Company Number: None

PATIENT
  Age: 30 Year
  Sex: Male

DRUGS (5)
  1. RISPERDAL [Suspect]
     Active Substance: RISPERIDONE
     Indication: Wrong patient
     Route: 065
     Dates: start: 20220622
  2. CLOBAZAM [Suspect]
     Active Substance: CLOBAZAM
     Indication: Wrong patient
     Route: 065
     Dates: start: 20220622
  3. VALPROMIDE [Suspect]
     Active Substance: VALPROMIDE
     Indication: Wrong patient
     Route: 065
     Dates: start: 20220622
  4. OXAZEPAM [Concomitant]
     Active Substance: OXAZEPAM
  5. LIORESAL [Concomitant]
     Active Substance: BACLOFEN

REACTIONS (3)
  - Hypotension [Recovered/Resolved]
  - Wrong patient [Recovered/Resolved]
  - Somnolence [Recovered/Resolved]

NARRATIVE: CASE EVENT DATE: 20220622
